FAERS Safety Report 18683050 (Version 1)
Quarter: 2020Q4

REPORT INFORMATION
  Report Type: Report from Study
  Country: US (occurrence: US)
  Receive Date: 20201230
  Receipt Date: 20201230
  Transmission Date: 20210114
  Serious: Yes (Life-Threatening, Hospitalization)
  Sender: FDA-Public Use
  Company Number: US-SAMSUNG BIOEPIS-SB-2020-36778

PATIENT
  Age: 20 Year
  Sex: Male
  Weight: 69.01 kg

DRUGS (9)
  1. RENFLEXIS [Suspect]
     Active Substance: INFLIXIMAB-ABDA
     Dosage: WEEK SIX
     Route: 042
  2. PREVYMIS [Concomitant]
     Active Substance: LETERMOVIR
     Indication: PRODUCT USED FOR UNKNOWN INDICATION
     Dosage: UNKNOWN
     Route: 065
  3. RENFLEXIS [Suspect]
     Active Substance: INFLIXIMAB-ABDA
     Route: 042
     Dates: end: 20200603
  4. RENFLEXIS [Suspect]
     Active Substance: INFLIXIMAB-ABDA
     Dosage: WEEK TWO
     Route: 042
  5. CHLORDIAZEPOXIDE;CLIDINIUM [Concomitant]
     Indication: PRODUCT USED FOR UNKNOWN INDICATION
     Dosage: 5MG-2.5MG
     Route: 048
  6. KEYTRUDA [Concomitant]
     Active Substance: PEMBROLIZUMAB
     Indication: PRODUCT USED FOR UNKNOWN INDICATION
     Dosage: UNKNOWN
     Route: 065
  7. FLUCONAZOLE. [Concomitant]
     Active Substance: FLUCONAZOLE
     Indication: PROPHYLAXIS
     Dosage: UNKNOWN
     Route: 065
  8. HYOSCYAMINE. [Concomitant]
     Active Substance: HYOSCYAMINE
     Indication: PRODUCT USED FOR UNKNOWN INDICATION
     Dosage: 1-2 TABS UPTO FOUR TIMES DAILY AS NEEDED DISINTERGRATING TABLET,
     Route: 048
  9. RENFLEXIS [Suspect]
     Active Substance: INFLIXIMAB-ABDA
     Indication: COLITIS ULCERATIVE
     Dosage: WEEK ZERO
     Route: 042
     Dates: start: 20200224

REACTIONS (8)
  - Dyspnoea [Recovered/Resolved]
  - Wheezing [Unknown]
  - Dizziness [Recovered/Resolved]
  - Swollen tongue [Unknown]
  - Vomiting [Unknown]
  - Heart rate increased [Unknown]
  - Nausea [Recovered/Resolved]
  - Flushing [Unknown]
